FAERS Safety Report 4843298-8 (Version None)
Quarter: 2005Q4

REPORT INFORMATION
  Report Type: 
  Country: None (occurrence: None)
  Receive Date: 20051201
  Receipt Date: 20030113
  Transmission Date: 20060501
  Serious: Yes (Life-Threatening, Hospitalization, Disabling)
  Sender: FDA-Public Use
  Company Number: US-MERCK-0301USA01104

PATIENT
  Age: 30 Year
  Sex: Male
  Weight: 85 kg

DRUGS (12)
  1. VIOXX [Suspect]
     Indication: PSORIATIC ARTHROPATHY
     Route: 048
     Dates: start: 20010904
  2. VIOXX [Suspect]
     Route: 048
     Dates: start: 20010901, end: 20020301
  3. METHOTREXATE [Concomitant]
     Indication: ARTHRITIS
     Route: 048
     Dates: start: 20010801, end: 20011101
  4. IBUPROFEN [Concomitant]
     Route: 065
     Dates: start: 19930101
  5. FOLIC ACID [Concomitant]
     Route: 065
     Dates: start: 20011017
  6. ZOCOR [Concomitant]
     Route: 048
     Dates: start: 20011127
  7. NITROQUICK [Concomitant]
     Route: 065
     Dates: start: 20020117
  8. PRILOSEC [Concomitant]
     Route: 065
     Dates: start: 20020204
  9. LEUCOVORIN CALCIUM [Concomitant]
     Route: 065
  10. DARVOCET-N 100 [Concomitant]
     Route: 048
  11. PLAVIX [Concomitant]
     Route: 048
     Dates: start: 20011127
  12. LOPRESSOR [Concomitant]
     Route: 048
     Dates: start: 20011127

REACTIONS (28)
  - ANGINA UNSTABLE [None]
  - ARTERIOSCLEROSIS CORONARY ARTERY [None]
  - ARTHRALGIA [None]
  - BACK PAIN [None]
  - BLOOD CHOLESTEROL INCREASED [None]
  - BLOOD TRIGLYCERIDES INCREASED [None]
  - BRONCHITIS [None]
  - CARDIOVASCULAR DISORDER [None]
  - CHEST PAIN [None]
  - CORONARY ARTERY RESTENOSIS [None]
  - CORONARY OSTIAL STENOSIS [None]
  - DRUG INEFFECTIVE [None]
  - DYSPEPSIA [None]
  - EMOTIONAL DISTRESS [None]
  - HYPERLIPIDAEMIA [None]
  - HYPERSENSITIVITY [None]
  - HYPERTENSION [None]
  - LOW DENSITY LIPOPROTEIN INCREASED [None]
  - MUSCLE SPASMS [None]
  - MYOCARDIAL INFARCTION [None]
  - MYOFASCIAL PAIN SYNDROME [None]
  - NECK PAIN [None]
  - OEDEMA PERIPHERAL [None]
  - PAIN IN EXTREMITY [None]
  - PSORIATIC ARTHROPATHY [None]
  - RENAL DISORDER [None]
  - RENAL FAILURE [None]
  - UPPER RESPIRATORY TRACT INFECTION [None]
